FAERS Safety Report 10505104 (Version 2)
Quarter: 2014Q4

REPORT INFORMATION
  Report Type: Report from Study
  Country: US (occurrence: US)
  Receive Date: 20141008
  Receipt Date: 20141008
  Transmission Date: 20150528
  Serious: Yes (Other)
  Sender: FDA-Public Use
  Company Number: US-SANOFI-AVENTIS-2013SA054919

PATIENT
  Age: 41 Year
  Sex: Female
  Weight: 49 kg

DRUGS (12)
  1. AUBAGIO [Suspect]
     Active Substance: TERIFLUNOMIDE
     Indication: MULTIPLE SCLEROSIS
     Route: 048
     Dates: start: 20130209
  2. CEFTIN [Concomitant]
     Active Substance: CEFUROXIME AXETIL
  3. NEURONTIN [Concomitant]
     Active Substance: GABAPENTIN
     Dates: end: 20140302
  4. BACLOFEN. [Concomitant]
     Active Substance: BACLOFEN
     Dates: end: 20140302
  5. ACTHAR [Concomitant]
     Active Substance: CORTICOTROPIN
  6. BUPROPION HYDROCHLORIDE. [Concomitant]
     Active Substance: BUPROPION HYDROCHLORIDE
     Dosage: SR 100 M
  7. PRAMIPEXOLE DIHYDROCHLORIDE. [Concomitant]
     Active Substance: PRAMIPEXOLE DIHYDROCHLORIDE
  8. TRAZODONE HYDROCHLORIDE. [Concomitant]
     Active Substance: TRAZODONE HYDROCHLORIDE
  9. AUBAGIO [Suspect]
     Active Substance: TERIFLUNOMIDE
     Indication: MULTIPLE SCLEROSIS
     Route: 048
     Dates: start: 20140228, end: 201404
  10. CYMBALTA [Concomitant]
     Active Substance: DULOXETINE HYDROCHLORIDE
  11. GABAPENTIN. [Concomitant]
     Active Substance: GABAPENTIN
  12. TOPAMAX [Concomitant]
     Active Substance: TOPIRAMATE

REACTIONS (38)
  - Fall [Unknown]
  - Muscle spasms [Unknown]
  - Influenza [Not Recovered/Not Resolved]
  - Sneezing [Not Recovered/Not Resolved]
  - Pneumonia [Unknown]
  - Gait disturbance [Unknown]
  - Malaise [Unknown]
  - Visual field defect [Unknown]
  - Optic neuritis [Unknown]
  - Hyperacusis [Not Recovered/Not Resolved]
  - Fatigue [Not Recovered/Not Resolved]
  - Laryngitis [Unknown]
  - Rhinorrhoea [Not Recovered/Not Resolved]
  - Headache [Not Recovered/Not Resolved]
  - Pollakiuria [Unknown]
  - Speech disorder [Recovering/Resolving]
  - Fatigue [Recovering/Resolving]
  - Pyrexia [Not Recovered/Not Resolved]
  - Alopecia [Recovering/Resolving]
  - Limb discomfort [Unknown]
  - Pain in extremity [Unknown]
  - Urinary incontinence [Unknown]
  - Abdominal discomfort [Recovering/Resolving]
  - Cough [Not Recovered/Not Resolved]
  - Sinus congestion [Not Recovered/Not Resolved]
  - Central nervous system lesion [Recovering/Resolving]
  - Dysgraphia [Unknown]
  - Menstruation irregular [Unknown]
  - Pruritus [Unknown]
  - Weight increased [Unknown]
  - Depression [Unknown]
  - Nasopharyngitis [Unknown]
  - Multiple sclerosis relapse [Unknown]
  - Ear pain [Not Recovered/Not Resolved]
  - Nasal dryness [Unknown]
  - Oropharyngeal pain [Not Recovered/Not Resolved]
  - Head discomfort [Not Recovered/Not Resolved]
  - Muscular weakness [Unknown]

NARRATIVE: CASE EVENT DATE: 20130525
